FAERS Safety Report 19815072 (Version 1)
Quarter: 2021Q3

REPORT INFORMATION
  Report Type: Spontaneous
  Country: US (occurrence: US)
  Receive Date: 20210907
  Receipt Date: 20210907
  Transmission Date: 20211014
  Serious: Yes (Hospitalization)
  Sender: FDA-Public Use
  Company Number: None

PATIENT
  Sex: Female

DRUGS (11)
  1. MULTI GUMMIE CHW WOMENS [Concomitant]
  2. SPIRONOLACT [Concomitant]
     Active Substance: SPIRONOLACTONE
  3. VASOTEC [Concomitant]
     Active Substance: ENALAPRIL MALEATE
  4. COUMADIN [Concomitant]
     Active Substance: WARFARIN SODIUM
  5. LASIX [Concomitant]
     Active Substance: FUROSEMIDE
  6. METOPROLOL. [Concomitant]
     Active Substance: METOPROLOL
  7. TADALAFIL 20MG TAB [Suspect]
     Active Substance: TADALAFIL
     Indication: PULMONARY ARTERIAL HYPERTENSION
     Dosage: TAKE 1 TABLET (20 MG) BY MOUTH DAILY
     Route: 048
     Dates: start: 20181030
  8. OXIDE [Concomitant]
  9. DIGOX [Concomitant]
     Active Substance: DIGOXIN
  10. OPSUMIT [Concomitant]
     Active Substance: MACITENTAN
  11. POT CL MIRCO [Concomitant]

REACTIONS (2)
  - Heart valve replacement [None]
  - Therapy interrupted [None]
